FAERS Safety Report 11992174 (Version 1)
Quarter: 2016Q1

REPORT INFORMATION
  Report Type: Spontaneous
  Country: CA (occurrence: None)
  Receive Date: 20160202
  Receipt Date: 20160202
  Transmission Date: 20160526
  Serious: Yes (Disabling)
  Sender: FDA-Public Use
  Company Number: None

PATIENT
  Age: 41 Year
  Sex: Female
  Weight: 65.77 kg

DRUGS (5)
  1. MULTIVITAMIN [Concomitant]
     Active Substance: VITAMINS
  2. VITAMIN D [Concomitant]
     Active Substance: CHOLECALCIFEROL
  3. CALCIUM [Concomitant]
     Active Substance: CALCIUM
  4. CIPRO [Suspect]
     Active Substance: CIPROFLOXACIN HYDROCHLORIDE
     Indication: ABDOMINAL PAIN
     Dosage: 1 PILL TWICE PER DAY TWICE DAILY  TAKEN BY MOUTH
     Route: 048
     Dates: start: 20151204, end: 20151207
  5. MAGNESIUM [Concomitant]
     Active Substance: MAGNESIUM

REACTIONS (8)
  - Anxiety [None]
  - Memory impairment [None]
  - Hypoaesthesia [None]
  - Peripheral coldness [None]
  - Paraesthesia [None]
  - Fatigue [None]
  - Pain in extremity [None]
  - Muscle twitching [None]

NARRATIVE: CASE EVENT DATE: 20151204
